FAERS Safety Report 24083293 (Version 1)
Quarter: 2024Q3

REPORT INFORMATION
  Report Type: Spontaneous
  Country: FR (occurrence: FR)
  Receive Date: 20240712
  Receipt Date: 20240712
  Transmission Date: 20241017
  Serious: Yes (Other)
  Sender: ROCHE
  Company Number: FR-ROCHE-10000022527

PATIENT
  Age: 82 Year
  Sex: Female

DRUGS (1)
  1. OBINUTUZUMAB [Suspect]
     Active Substance: OBINUTUZUMAB
     Indication: Chronic lymphocytic leukaemia
     Dosage: VIALS 1000 MG/40 ML.
     Route: 042

REACTIONS (2)
  - Cardio-respiratory arrest [Unknown]
  - Hypotension [Unknown]
